FAERS Safety Report 8882039 (Version 6)
Quarter: 2013Q2

REPORT INFORMATION
  Report Type: Spontaneous
  Country: US (occurrence: US)
  Receive Date: 20121102
  Receipt Date: 20130429
  Transmission Date: 20140414
  Serious: Yes (Hospitalization)
  Sender: FDA-Public Use
  Company Number: US-B.I. PHARMACEUTICALS,INC./RIDGEFIELD-2012-BP-26990BP

PATIENT
  Age: 86 Year
  Sex: Female
  Weight: 64.86 kg

DRUGS (15)
  1. PRADAXA [Suspect]
     Indication: ATRIAL FIBRILLATION
     Dosage: 150 MG
     Route: 048
     Dates: start: 20110807, end: 20111108
  2. ASPIRIN [Concomitant]
     Dosage: 81 MG
     Route: 048
  3. BUMEX [Concomitant]
     Dosage: 1 MG
     Route: 048
  4. CINNAMON BARK [Concomitant]
     Dosage: 1000 MG
     Route: 048
  5. COENZYME Q10 [Concomitant]
     Dosage: 100 MG
     Route: 048
  6. COREG [Concomitant]
     Dosage: 12.5 MG
     Route: 048
  7. DIGOXIN [Concomitant]
     Route: 048
  8. FLAXSEED OIL [Concomitant]
     Dosage: 500 MG
     Route: 048
  9. GLIMEPIRIDE [Concomitant]
     Route: 048
  10. POTASSIUM [Concomitant]
     Dosage: 20 MEQ
     Route: 048
  11. MAGNESIUM OXIDE [Concomitant]
     Dosage: 40 MG
     Route: 048
  12. RED YEAST RICE [Concomitant]
  13. TESSALON PERLES [Concomitant]
     Dosage: 300 MG
     Route: 048
  14. XALATAN DROPS [Concomitant]
  15. ZYRTEC [Concomitant]
     Dosage: 10 MG
     Route: 048

REACTIONS (4)
  - Upper gastrointestinal haemorrhage [Not Recovered/Not Resolved]
  - Coagulopathy [Unknown]
  - Lower gastrointestinal haemorrhage [Not Recovered/Not Resolved]
  - Haemorrhagic anaemia [Unknown]
